FAERS Safety Report 8950914 (Version 2)
Quarter: 2013Q1

REPORT INFORMATION
  Report Type: Spontaneous
  Country: US (occurrence: US)
  Receive Date: 20121207
  Receipt Date: 20130208
  Transmission Date: 20140127
  Serious: Yes (Death)
  Sender: FDA-Public Use
  Company Number: US-FRI-1000040776

PATIENT
  Age: 56 Year
  Sex: Female
  Weight: 60.7 kg

DRUGS (8)
  1. CITALOPRAM [Suspect]
  2. TRAMADOL [Suspect]
  3. BUTALBITAL [Suspect]
  4. ZOLPIDEM [Suspect]
  5. CARISOPRODOL [Suspect]
  6. TEMAZEPAM [Suspect]
  7. HYDROCODONE [Suspect]
  8. DIPHENHYDRAMINE [Suspect]

REACTIONS (2)
  - Toxicity to various agents [Fatal]
  - Completed suicide [Fatal]
